FAERS Safety Report 24552877 (Version 4)
Quarter: 2024Q4

REPORT INFORMATION
  Report Type: Spontaneous
  Country: US (occurrence: US)
  Receive Date: 20241027
  Receipt Date: 20241108
  Transmission Date: 20250114
  Serious: Yes (Hospitalization)
  Sender: ROCHE
  Company Number: US-ROCHE-10000115668

PATIENT
  Age: 62 Year
  Sex: Female

DRUGS (12)
  1. COTELLIC [Suspect]
     Active Substance: COBIMETINIB
     Indication: Malignant melanoma
     Route: 048
     Dates: start: 20241011
  2. ZELBORAF [Suspect]
     Active Substance: VEMURAFENIB
     Indication: Metastases to central nervous system
     Route: 048
     Dates: start: 20241010
  3. ALPRAZOLAM [Concomitant]
     Active Substance: ALPRAZOLAM
  4. AMLODIPINE [Concomitant]
     Active Substance: AMLODIPINE BESYLATE
  5. BRAFTOVI [Concomitant]
     Active Substance: ENCORAFENIB
  6. DEXAMETHASONE [Concomitant]
     Active Substance: DEXAMETHASONE
  7. DEXAMETHASONE [Concomitant]
     Active Substance: DEXAMETHASONE
  8. DEXAMETHASONE [Concomitant]
     Active Substance: DEXAMETHASONE
  9. DIPHEN [Concomitant]
     Active Substance: DIPHENHYDRAMINE HYDROCHLORIDE
  10. GABAPENTIN [Concomitant]
     Active Substance: GABAPENTIN
  11. A-HYDROCORT [Concomitant]
     Active Substance: HYDROCORTISONE SODIUM SUCCINATE
  12. LATANOPROST [Concomitant]
     Active Substance: LATANOPROST

REACTIONS (4)
  - Hypotension [Unknown]
  - Rash [Unknown]
  - Pyrexia [Unknown]
  - Nausea [Unknown]

NARRATIVE: CASE EVENT DATE: 20241020
